FAERS Safety Report 9425424 (Version 1)
Quarter: 2013Q3

REPORT INFORMATION
  Report Type: Spontaneous
  Country: US (occurrence: US)
  Receive Date: 20130729
  Receipt Date: 20130729
  Transmission Date: 20140515
  Serious: Yes (Hospitalization, Other)
  Sender: FDA-Public Use
  Company Number: US-BAYER-2013-091161

PATIENT
  Age: 32 Year
  Sex: Female

DRUGS (11)
  1. YAZ [Suspect]
  2. VICODIN [Concomitant]
  3. ORTHO EVRA [Concomitant]
  4. CLINDESSE [Concomitant]
     Dosage: 2 %
     Route: 067
     Dates: start: 20060921
  5. ACETAMINOPHEN W/OXYCODONE [Concomitant]
     Dosage: 5/325
     Dates: start: 20061017
  6. PENICILLIN VK [Concomitant]
     Dosage: 500 MG, UNK
     Dates: start: 20061017
  7. PENICILLIN VK [Concomitant]
     Dosage: 4 MG, UNK
     Dates: start: 20061017
  8. IBUPROFEN [Concomitant]
     Dosage: 800 MG, UNK
     Dates: start: 20061017
  9. METRONIDAZOL [Concomitant]
     Dosage: UNK
     Dates: start: 20101018
  10. VALTREX [Concomitant]
     Dosage: UNK
     Dates: start: 20100902
  11. DEXAMETHASONE [Concomitant]
     Dosage: UNK
     Dates: start: 20061017

REACTIONS (3)
  - Pulmonary artery thrombosis [None]
  - Cholelithiasis [None]
  - Deep vein thrombosis [None]
